FAERS Safety Report 14583642 (Version 2)
Quarter: 2018Q1

REPORT INFORMATION
  Report Type: Spontaneous
  Country: US (occurrence: US)
  Receive Date: 20180228
  Receipt Date: 20180305
  Transmission Date: 20180509
  Serious: Yes (Other)
  Sender: FDA-Public Use
  Company Number: US-JNJFOC-20180231743

PATIENT

DRUGS (3)
  1. EVICEL [Suspect]
     Active Substance: FIBRINOGEN HUMAN\THROMBIN HUMAN
     Indication: TISSUE SEALING
     Route: 061
  2. HUMAN THROMBIN [Suspect]
     Active Substance: THROMBIN HUMAN
     Indication: HAEMOSTASIS
     Route: 061
  3. SURGICEL [Suspect]
     Active Substance: CELLULOSE, OXIDIZED
     Indication: HAEMOSTASIS

REACTIONS (7)
  - Haemorrhage [Unknown]
  - Nausea [Unknown]
  - Post procedural urine leak [Recovered/Resolved]
  - Urinoma [Unknown]
  - Atelectasis [Unknown]
  - Hypoxia [Unknown]
  - Pyrexia [Unknown]
